FAERS Safety Report 19706126 (Version 1)
Quarter: 2021Q3

REPORT INFORMATION
  Report Type: Spontaneous
  Country: DE (occurrence: DE)
  Receive Date: 20210817
  Receipt Date: 20210817
  Transmission Date: 20211014
  Serious: Yes (Hospitalization)
  Sender: FDA-Public Use
  Company Number: DE-TEVA-2021-DE-1941169

PATIENT
  Age: 60 Year
  Sex: Female

DRUGS (2)
  1. LETROZOL [Suspect]
     Active Substance: LETROZOLE
     Route: 048
  2. LOSARTAN COMP. ABZ 50 MG/12,5 MG FILMTABLETTEN [Concomitant]
     Dosage: 1 DOSAGE FORMS DAILY; 12.5|50 MG, 0?0?1?0
     Route: 048

REACTIONS (4)
  - Performance status decreased [Unknown]
  - Palpitations [Unknown]
  - Dizziness [Unknown]
  - Restlessness [Unknown]
